FAERS Safety Report 5787380-X (Version None)
Quarter: 2008Q2

REPORT INFORMATION
  Report Type: 
  Country: None (occurrence: None)
  Receive Date: 20080625
  Receipt Date: 20080616
  Transmission Date: 20081010
  Serious: Yes (Other)
  Sender: FDA-Public Use
  Company Number: US-BAYER-200812493BCC

PATIENT
  Sex: Female

DRUGS (2)
  1. ASPIRIN [Suspect]
     Indication: BONE PAIN
     Route: 048
  2. ALEVE (CAPLET) [Suspect]
     Indication: HEADACHE
     Route: 048
     Dates: start: 19960101

REACTIONS (2)
  - ABDOMINAL PAIN UPPER [None]
  - GASTRIC HAEMORRHAGE [None]
